FAERS Safety Report 6003145-8 (Version None)
Quarter: 2008Q4

REPORT INFORMATION
  Report Type: 
  Country: None (occurrence: None)
  Receive Date: 20081216
  Receipt Date: 20081210
  Transmission Date: 20090506
  Serious: Yes (Other)
  Sender: FDA-Public Use
  Company Number: JP-JNJFOC-20081106376

PATIENT
  Age: 43 Year
  Sex: Female

DRUGS (1)
  1. ITRIZOLE [Suspect]
     Indication: DRUG USE FOR UNKNOWN INDICATION
     Dosage: PULSE THERAPY
     Route: 048

REACTIONS (4)
  - MALAISE [None]
  - OEDEMA [None]
  - URINARY RETENTION [None]
  - WEIGHT DECREASED [None]
